FAERS Safety Report 11871480 (Version 1)
Quarter: 2015Q4

REPORT INFORMATION
  Report Type: Spontaneous
  Country: US (occurrence: None)
  Receive Date: 20151224
  Receipt Date: 20151224
  Transmission Date: 20160305
  Serious: Yes (Hospitalization)
  Sender: FDA-Public Use
  Company Number: None

PATIENT
  Age: 50 Year
  Sex: Male

DRUGS (10)
  1. CEFTRIAXONE. [Concomitant]
     Active Substance: CEFTRIAXONE
  2. GABAPENTIN. [Concomitant]
     Active Substance: GABAPENTIN
  3. LITHIUM. [Concomitant]
     Active Substance: LITHIUM
  4. FENTANYL TRANSDERMAL SYSTEM [Concomitant]
     Active Substance: FENTANYL
  5. HALOPERIDOL. [Concomitant]
     Active Substance: HALOPERIDOL
  6. QUETIAPINE [Concomitant]
     Active Substance: QUETIAPINE
  7. HEPARIN [Suspect]
     Active Substance: HEPARIN SODIUM
     Indication: ANTICOAGULANT THERAPY
     Route: 042
     Dates: start: 20150825, end: 20150918
  8. HYDROMORPHONE [Concomitant]
     Active Substance: HYDROMORPHONE
  9. BUPROPION. [Concomitant]
     Active Substance: BUPROPION
  10. HEPARIN [Concomitant]
     Active Substance: HEPARIN SODIUM

REACTIONS (6)
  - Post procedural complication [None]
  - Laboratory test abnormal [None]
  - Activated partial thromboplastin time prolonged [None]
  - Somnolence [None]
  - Sedation [None]
  - Mental status changes [None]

NARRATIVE: CASE EVENT DATE: 20150915
